FAERS Safety Report 11467040 (Version 2)
Quarter: 2015Q4

REPORT INFORMATION
  Report Type: Spontaneous
  Country: US (occurrence: US)
  Receive Date: 20150908
  Receipt Date: 20151020
  Transmission Date: 20160304
  Serious: No
  Sender: FDA-Public Use
  Company Number: US-ROCHE-1616554

PATIENT
  Sex: Female
  Weight: 77.18 kg

DRUGS (2)
  1. GABAPENTIN. [Concomitant]
     Active Substance: GABAPENTIN
  2. ESBRIET [Suspect]
     Active Substance: PIRFENIDONE
     Indication: IDIOPATHIC PULMONARY FIBROSIS
     Dosage: TOTAL DAILY DOSE: 2403 MG
     Route: 048
     Dates: start: 20150625

REACTIONS (4)
  - Pruritus [Not Recovered/Not Resolved]
  - Photosensitivity reaction [Unknown]
  - Rash [Unknown]
  - Rash erythematous [Not Recovered/Not Resolved]
